FAERS Safety Report 11754611 (Version 4)
Quarter: 2016Q1

REPORT INFORMATION
  Report Type: Spontaneous
  Country: US (occurrence: US)
  Receive Date: 20151119
  Receipt Date: 20160217
  Transmission Date: 20160525
  Serious: Yes (Other)
  Sender: FDA-Public Use
  Company Number: US-PFIZER INC-2015390520

PATIENT
  Age: 63 Year
  Sex: Male
  Weight: 81 kg

DRUGS (2)
  1. COSOPT [Suspect]
     Active Substance: DORZOLAMIDE HYDROCHLORIDE\TIMOLOL MALEATE
     Indication: GLAUCOMA
     Dosage: ONE DROP IN BOTH EYES, TWICE A DAY (MORNING AND EVENING)
     Route: 047
     Dates: start: 1998
  2. XALATAN [Suspect]
     Active Substance: LATANOPROST
     Indication: GLAUCOMA
     Dosage: ONE DROP IN EACH EYE, ONCE A DAY IN EVENING
     Route: 047
     Dates: start: 1998

REACTIONS (1)
  - Type 2 diabetes mellitus [Not Recovered/Not Resolved]

NARRATIVE: CASE EVENT DATE: 201510
